FAERS Safety Report 11330995 (Version 1)
Quarter: 2015Q3

REPORT INFORMATION
  Report Type: Spontaneous
  Country: US (occurrence: None)
  Receive Date: 20150730
  Receipt Date: 20150730
  Transmission Date: 20151125
  Serious: Yes (Other)
  Sender: FDA-Public Use
  Company Number: None

PATIENT
  Age: 58 Year
  Sex: Female
  Weight: 79.38 kg

DRUGS (11)
  1. METHOTREXATE [Concomitant]
     Active Substance: METHOTREXATE
  2. CLARATIN [Concomitant]
  3. MILK THISTLE [Concomitant]
     Active Substance: MILK THISTLE
  4. XELJANZ [Suspect]
     Active Substance: TOFACITINIB CITRATE
     Indication: RHEUMATOID ARTHRITIS
     Route: 048
     Dates: start: 20150527, end: 20150725
  5. LEXAPRO [Concomitant]
     Active Substance: ESCITALOPRAM OXALATE
  6. IRON [Concomitant]
     Active Substance: IRON
  7. MELATONIN [Concomitant]
     Active Substance: MELATONIN
  8. FOLIC ACID. [Concomitant]
     Active Substance: FOLIC ACID
  9. TRAZODONE [Concomitant]
     Active Substance: TRAZODONE HYDROCHLORIDE
  10. KRILL OIL [Concomitant]
     Active Substance: DIETARY SUPPLEMENT
  11. WELLBUTRIN SR [Concomitant]
     Active Substance: BUPROPION HYDROCHLORIDE

REACTIONS (5)
  - Insomnia [None]
  - Thinking abnormal [None]
  - Headache [None]
  - Ocular discomfort [None]
  - Impaired work ability [None]

NARRATIVE: CASE EVENT DATE: 20150527
